FAERS Safety Report 11089964 (Version 2)
Quarter: 2015Q2

REPORT INFORMATION
  Report Type: Spontaneous
  Country: US (occurrence: None)
  Receive Date: 20150501
  Receipt Date: 20150622
  Transmission Date: 20150821
  Serious: Yes (Other)
  Sender: FDA-Public Use
  Company Number: 2015JUB00116

PATIENT
  Age: 47 Year
  Sex: Male
  Weight: 103.4 kg

DRUGS (11)
  1. PREDNISONE. [Suspect]
     Active Substance: PREDNISONE
     Indication: LUNG DISORDER
     Route: 048
     Dates: start: 20020123, end: 201402
  2. PULMICORT TURBUHALER [Concomitant]
     Active Substance: BUDESONIDE
  3. PREDNISONE. [Suspect]
     Active Substance: PREDNISONE
     Indication: ASTHMA
     Route: 048
     Dates: start: 20020123, end: 201402
  4. SULFAMETHOXAZOLE-TRIMETHOPRIM (SULFAMETHYXAZOLE-TRIMETHOPRIM) [Concomitant]
  5. VITAMIN D3 (VITAMIN D3) [Concomitant]
  6. ADVAIR -DISKUS (FLUTICASONE PROPIONATE) [Concomitant]
  7. FAMOTIDINE (FAMOTIDINE) [Concomitant]
     Active Substance: FAMOTIDINE
  8. VITAMIN D [Concomitant]
     Active Substance: CHOLECALCIFEROL
  9. CALCIUM (CALCIUM) [Concomitant]
     Active Substance: CALCIUM
  10. ALBUTEROL (ALBUTEROL) [Concomitant]
     Active Substance: ALBUTEROL
  11. PHENAZOPURIDINE (PHENAZOPYRIDINE) [Concomitant]

REACTIONS (22)
  - Osteochondrosis [None]
  - Muscle disorder [None]
  - Arthropathy [None]
  - Personality change [None]
  - Calcium deficiency [None]
  - Affect lability [None]
  - Osteoporosis [None]
  - Blood pressure increased [None]
  - Lipoma [None]
  - Spinal disorder [None]
  - Tendon disorder [None]
  - Nervous system disorder [None]
  - Liposarcoma [None]
  - Back disorder [None]
  - Optic nerve injury [None]
  - Osteopenia [None]
  - Chondropathy [None]
  - Vitamin D deficiency [None]
  - Depression [None]
  - Mood swings [None]
  - Fracture [None]
  - Soft tissue disorder [None]

NARRATIVE: CASE EVENT DATE: 2002
